FAERS Safety Report 8006041-X (Version None)
Quarter: 2011Q4

REPORT INFORMATION
  Report Type: 
  Country: None (occurrence: None)
  Receive Date: 20111226
  Receipt Date: 20111215
  Transmission Date: 20120403
  Serious: Yes (Hospitalization)
  Sender: FDA-Public Use
  Company Number: US-BIOGENIDEC-2011BI047522

PATIENT
  Age: 31 Year
  Sex: Female
  Weight: 49 kg

DRUGS (11)
  1. MOXIFLOXACIN [Concomitant]
     Route: 048
  2. KLONOPIN [Concomitant]
     Indication: ANXIETY
     Route: 048
  3. COLACE [Concomitant]
     Route: 048
  4. LOVAZA [Concomitant]
  5. VITAMIN B-12 [Concomitant]
  6. DILAUDID [Concomitant]
     Indication: PAIN
     Route: 048
  7. VITAMIN D [Concomitant]
  8. TYSABRI [Suspect]
     Indication: CROHN'S DISEASE
     Route: 042
     Dates: start: 20110908, end: 20111026
  9. MIRALAX [Concomitant]
  10. LOESTRIN 1.5/30 [Concomitant]
     Indication: ORAL CONTRACEPTION
  11. BIFERA [Concomitant]

REACTIONS (1)
  - ANAL ABSCESS [None]
